FAERS Safety Report 14253347 (Version 1)
Quarter: 2017Q4

REPORT INFORMATION
  Report Type: Spontaneous
  Country: US (occurrence: US)
  Receive Date: 20171205
  Receipt Date: 20171205
  Transmission Date: 20180321
  Serious: No
  Sender: FDA-Public Use
  Company Number: US-ASTRAZENECA-2017SF23215

PATIENT
  Sex: Male

DRUGS (1)
  1. IMFINZI [Suspect]
     Active Substance: DURVALUMAB
     Dosage: ONCE/SINGLE ADMINISTRATION
     Route: 042

REACTIONS (3)
  - Off label use [Unknown]
  - Pneumonia [Unknown]
  - Product use in unapproved indication [Unknown]
